FAERS Safety Report 22208537 (Version 2)
Quarter: 2023Q2

REPORT INFORMATION
  Report Type: Spontaneous
  Country: US (occurrence: US)
  Receive Date: 20230413
  Receipt Date: 20230509
  Transmission Date: 20230721
  Serious: No
  Sender: FDA-Public Use
  Company Number: US-BRISTOL-MYERS SQUIBB COMPANY-2023-053101

PATIENT
  Age: 63 Year
  Sex: Male
  Weight: 82 kg

DRUGS (2)
  1. REVLIMID [Suspect]
     Active Substance: LENALIDOMIDE
     Indication: Plasma cell myeloma
     Dosage: DAILY DAYS 1-21 EVERY 28 DAYS
     Route: 048
     Dates: start: 20180101
  2. REVLIMID [Suspect]
     Active Substance: LENALIDOMIDE
     Dosage: DAILY DAYS 1-21 EVERY 28 DAYS
     Route: 048
     Dates: start: 20211028

REACTIONS (2)
  - Laboratory test abnormal [Unknown]
  - Illness [Unknown]
